FAERS Safety Report 14192919 (Version 1)
Quarter: 2017Q4

REPORT INFORMATION
  Report Type: Spontaneous
  Country: FR (occurrence: FR)
  Receive Date: 20171116
  Receipt Date: 20171116
  Transmission Date: 20180321
  Serious: Yes (Other)
  Sender: FDA-Public Use
  Company Number: FR-MERCK KGAA-2034202

PATIENT
  Sex: Female

DRUGS (1)
  1. NOVOTHYROX [Suspect]
     Active Substance: LEVOTHYROXINE SODIUM
     Indication: AUTOIMMUNE THYROIDITIS
     Dates: start: 201707

REACTIONS (12)
  - Feeling abnormal [None]
  - Alopecia [None]
  - Fatigue [None]
  - Dysphagia [None]
  - Anxiety [None]
  - Panic disorder [None]
  - Blindness [None]
  - Pain in extremity [Not Recovered/Not Resolved]
  - Arthralgia [None]
  - Hypokinesia [None]
  - Somnolence [None]
  - Disorientation [None]
